FAERS Safety Report 21120784 (Version 3)
Quarter: 2025Q1

REPORT INFORMATION
  Report Type: Report from Study
  Country: US (occurrence: US)
  Receive Date: 20220722
  Receipt Date: 20250208
  Transmission Date: 20250409
  Serious: Yes (Other)
  Sender: AVEO PHARMACEUTICALS
  Company Number: US-AVEO ONCOLOGY-2022-AVEO-US000253

PATIENT

DRUGS (18)
  1. FOTIVDA [Suspect]
     Active Substance: TIVOZANIB HYDROCHLORIDE
     Indication: Renal cell carcinoma
     Dosage: 1.34 MG, DAILY FOR 21 DAYS WITH 7 DAYS OFF (28-DAY CYCLE)
     Route: 048
     Dates: start: 20220618, end: 20220629
  2. ALBUTEROL [Concomitant]
     Active Substance: ALBUTEROL
  3. ATIVAN [Concomitant]
     Active Substance: LORAZEPAM
  4. BYSTOLIC [Concomitant]
     Active Substance: NEBIVOLOL HYDROCHLORIDE
  5. CREON [Concomitant]
     Active Substance: PANCRELIPASE AMYLASE\PANCRELIPASE LIPASE\PANCRELIPASE PROTEASE
  6. DECADRON [Concomitant]
     Active Substance: DEXAMETHASONE
  7. FLOVENT DISKUS [Concomitant]
     Active Substance: FLUTICASONE PROPIONATE
  8. LOSARTAN [Concomitant]
     Active Substance: LOSARTAN
  9. MORPHINE SULFATE [Concomitant]
     Active Substance: MORPHINE SULFATE
  10. MS CONTIN [Concomitant]
     Active Substance: MORPHINE SULFATE
  11. OXYCODONE [Concomitant]
     Active Substance: OXYCODONE
  12. SENOKOT [Concomitant]
     Active Substance: SENNOSIDES
  13. SUMATRIPTAN [Concomitant]
     Active Substance: SUMATRIPTAN
  14. VENLAFAXINE [Concomitant]
     Active Substance: VENLAFAXINE HYDROCHLORIDE
  15. VENTOLIN [Concomitant]
     Active Substance: ALBUTEROL SULFATE
  16. SENNA [Concomitant]
     Active Substance: SENNOSIDES
  17. DEXAMETHASONE [Concomitant]
     Active Substance: DEXAMETHASONE
  18. NARCAN [Concomitant]
     Active Substance: NALOXONE HYDROCHLORIDE

REACTIONS (2)
  - Posterior reversible encephalopathy syndrome [Unknown]
  - Blood pressure abnormal [Unknown]

NARRATIVE: CASE EVENT DATE: 20220601
